FAERS Safety Report 4876094-6 (Version None)
Quarter: 2006Q1

REPORT INFORMATION
  Report Type: 
  Country: None (occurrence: None)
  Receive Date: 20060106
  Receipt Date: 20060106
  Transmission Date: 20060701
  Serious: Yes (Hospitalization)
  Sender: FDA-Public Use
  Company Number: None

PATIENT
  Age: 30 Year
  Sex: Male
  Weight: 90.2658 kg

DRUGS (3)
  1. RITONAVIR [Suspect]
     Indication: HIV INFECTION
     Dosage: 100 MG BID
     Dates: start: 20010801, end: 20011020
  2. SAQUINAVIR SOFTGEL [Suspect]
     Indication: HIV INFECTION
     Dosage: 1000 MG BID
     Dates: start: 20010801, end: 20011020
  3. GEMFIBROZIL [Concomitant]

REACTIONS (2)
  - ABDOMINAL PAIN UPPER [None]
  - PANCREATITIS [None]
